FAERS Safety Report 6870680-X (Version None)
Quarter: 2010Q3

REPORT INFORMATION
  Report Type: 
  Country: None (occurrence: None)
  Receive Date: 20100723
  Receipt Date: 20090909
  Transmission Date: 20110219
  Serious: No
  Sender: FDA-Public Use
  Company Number: A0802534A

PATIENT
  Sex: Female

DRUGS (2)
  1. DYAZIDE [Suspect]
     Indication: FLUID RETENTION
     Route: 065
  2. AZITHROMYCIN [Suspect]
     Indication: BLEPHARITIS
     Route: 001

REACTIONS (1)
  - EYE PAIN [None]
